FAERS Safety Report 7636375-X (Version None)
Quarter: 2011Q3

REPORT INFORMATION
  Report Type: 
  Country: None (occurrence: None)
  Receive Date: 20110726
  Receipt Date: 20110718
  Transmission Date: 20111222
  Serious: Yes (Other)
  Sender: FDA-Public Use
  Company Number: GB-GLAXOSMITHKLINE-B0734003A

PATIENT
  Sex: Male

DRUGS (2)
  1. REQUIP XL [Suspect]
     Indication: PARKINSONISM
     Dosage: 1TAB CUMULATIVE DOSE
     Route: 048
     Dates: start: 20110714, end: 20110714
  2. REQUIP [Concomitant]

REACTIONS (3)
  - MEDICATION RESIDUE [None]
  - PARKINSONISM [None]
  - DRUG INEFFECTIVE [None]
